FAERS Safety Report 15120331 (Version 1)
Quarter: 2018Q3

REPORT INFORMATION
  Report Type: Spontaneous
  Country: US (occurrence: US)
  Receive Date: 20180613
  Receipt Date: 20180613
  Transmission Date: 20181010
  Serious: No
  Sender: FDA-Public Use
  Company Number: None

PATIENT
  Age: 33 Year
  Sex: Female

DRUGS (1)
  1. OPSUMIT [Suspect]
     Active Substance: MACITENTAN
     Indication: PULMONARY HYPERTENSION
     Route: 048
     Dates: start: 20180518

REACTIONS (7)
  - Oropharyngeal pain [None]
  - Migraine [None]
  - Pyrexia [None]
  - Chest discomfort [None]
  - Condition aggravated [None]
  - Dyspnoea [None]
  - Dyspnoea exertional [None]

NARRATIVE: CASE EVENT DATE: 20180521
